FAERS Safety Report 5727515-8 (Version None)
Quarter: 2008Q2

REPORT INFORMATION
  Report Type: 
  Country: None (occurrence: None)
  Receive Date: 20080505
  Receipt Date: 20080325
  Transmission Date: 20081010
  Serious: Yes (Other)
  Sender: FDA-Public Use
  Company Number: US-BAYER-200811180BCC

PATIENT
  Age: 46 Year
  Sex: Female
  Weight: 59 kg

DRUGS (1)
  1. EXTRA STRENGTH ALKA-SELTZER [Suspect]
     Indication: HEADACHE
     Route: 048
     Dates: start: 20080320

REACTIONS (11)
  - AMNESIA [None]
  - CONVULSION [None]
  - DISORIENTATION [None]
  - DISTURBANCE IN ATTENTION [None]
  - FEELING COLD [None]
  - LOSS OF CONSCIOUSNESS [None]
  - NAUSEA [None]
  - TONGUE BITING [None]
  - TOOTH LOSS [None]
  - TREMOR [None]
  - UNEVALUABLE EVENT [None]
